FAERS Safety Report 25829567 (Version 2)
Quarter: 2025Q4

REPORT INFORMATION
  Report Type: Report from Study
  Country: US (occurrence: US)
  Receive Date: 20250922
  Receipt Date: 20251014
  Transmission Date: 20260117
  Serious: Yes (Other)
  Sender: STALLERGENES
  Company Number: US-STALCOR-2025-AER-02633

PATIENT
  Age: 4 Year
  Sex: Female

DRUGS (3)
  1. PALFORZIA [Suspect]
     Active Substance: PEANUT
     Indication: Food allergy
     Dosage: START DATE OF REACTIVE DOSE AT LEVEL 8, 160MG.
     Route: 048
     Dates: start: 20250829
  2. HYDROCORTISONE [Concomitant]
     Active Substance: HYDROCORTISONE
     Indication: Product used for unknown indication
     Dosage: 28.35 GM
  3. EPIHEPHRINE [Concomitant]
     Indication: Prophylaxis
     Route: 030

REACTIONS (8)
  - Anaphylactic reaction [Recovered/Resolved]
  - Erythema [Recovered/Resolved]
  - Cough [Recovered/Resolved]
  - Rhinorrhoea [Recovered/Resolved]
  - Abdominal pain [Recovered/Resolved]
  - Sneezing [Recovered/Resolved]
  - Therapy interrupted [Recovered/Resolved]
  - Product use issue [Recovered/Resolved]

NARRATIVE: CASE EVENT DATE: 20250902
